FAERS Safety Report 24164644 (Version 1)
Quarter: 2024Q3

REPORT INFORMATION
  Report Type: Spontaneous
  Country: US (occurrence: US)
  Receive Date: 20240801
  Receipt Date: 20240801
  Transmission Date: 20241016
  Serious: No
  Sender: AIMMUNE
  Company Number: US-AIMMUNE THERAPEUTICS, INC.-2024AIMT00786

PATIENT

DRUGS (1)
  1. VOWST [Suspect]
     Active Substance: DONOR HUMAN STOOL SPORES (ETHANOL TREATED)
     Indication: Clostridium difficile infection
     Dosage: UNK
     Route: 048
     Dates: start: 20240405, end: 20240407

REACTIONS (4)
  - Gastrointestinal disorder [Unknown]
  - Vomiting [Unknown]
  - Feeding disorder [Unknown]
  - Diarrhoea [Unknown]
